FAERS Safety Report 18544568 (Version 2)
Quarter: 2020Q4

REPORT INFORMATION
  Report Type: Spontaneous
  Country: JP (occurrence: JP)
  Receive Date: 20201125
  Receipt Date: 20201207
  Transmission Date: 20210114
  Serious: Yes (Other)
  Sender: FDA-Public Use
  Company Number: NVSJ2020JP012525

PATIENT
  Age: 67 Year
  Sex: Male

DRUGS (4)
  1. BEOVU [Suspect]
     Active Substance: BROLUCIZUMAB-DBLL
     Indication: NEOVASCULAR AGE-RELATED MACULAR DEGENERATION
     Dosage: 6 MG
     Route: 031
     Dates: start: 20200908, end: 20200908
  2. BEOVU [Suspect]
     Active Substance: BROLUCIZUMAB-DBLL
     Dosage: 6 MG
     Route: 031
     Dates: start: 20201006, end: 20201006
  3. AFLIBERCEPT [Suspect]
     Active Substance: AFLIBERCEPT
     Indication: NEOVASCULAR AGE-RELATED MACULAR DEGENERATION
     Dosage: UNKNOWN (1ST-13TH)
     Route: 031
     Dates: start: 20190617
  4. AFLIBERCEPT [Suspect]
     Active Substance: AFLIBERCEPT
     Dosage: UNKNOWN (LAST, 14TH)
     Route: 031
     Dates: start: 20200728, end: 20200728

REACTIONS (6)
  - Vitreal cells [Recovering/Resolving]
  - Vitreous opacities [Recovering/Resolving]
  - Vitritis [Recovering/Resolving]
  - Vision blurred [Recovering/Resolving]
  - Vitreous floaters [Recovered/Resolved]
  - Visual acuity reduced [Recovering/Resolving]

NARRATIVE: CASE EVENT DATE: 20201007
